FAERS Safety Report 6544549-4 (Version None)
Quarter: 2010Q1

REPORT INFORMATION
  Report Type: 
  Country: None (occurrence: None)
  Receive Date: 20100120
  Receipt Date: 20100120
  Transmission Date: 20100710
  Serious: Yes (Death, Hospitalization)
  Sender: FDA-Public Use
  Company Number: None

PATIENT
  Sex: Male
  Weight: 77.1 kg

DRUGS (2)
  1. CISPLATIN [Suspect]
     Dosage: 155 MG
  2. ETOPOSIDE [Suspect]
     Dosage: 400 MG

REACTIONS (2)
  - CARDIOMYOPATHY [None]
  - MYOCARDIAL INFARCTION [None]
